FAERS Safety Report 12958449 (Version 1)
Quarter: 2016Q4

REPORT INFORMATION
  Report Type: Spontaneous
  Country: US (occurrence: US)
  Receive Date: 20161121
  Receipt Date: 20161121
  Transmission Date: 20170207
  Serious: No
  Sender: FDA-Public Use
  Company Number: US-TEVA-659419USA

PATIENT
  Sex: Male
  Weight: 73.55 kg

DRUGS (1)
  1. DIAZEPAM. [Suspect]
     Active Substance: DIAZEPAM
     Indication: BACK PAIN

REACTIONS (2)
  - Nightmare [Unknown]
  - Wrong technique in product usage process [Unknown]
